FAERS Safety Report 7743104-8 (Version None)
Quarter: 2011Q3

REPORT INFORMATION
  Report Type: 
  Country: None (occurrence: None)
  Receive Date: 20110819
  Receipt Date: 20110531
  Transmission Date: 20111222
  Serious: No
  Sender: FDA-Public Use
  Company Number: 033062

PATIENT
  Sex: Female

DRUGS (2)
  1. ANTIEPILEPTICS [Concomitant]
  2. LACOSAMIDE [Suspect]
     Indication: PARTIAL SEIZURES

REACTIONS (1)
  - TIC [None]
